FAERS Safety Report 7580990-9 (Version None)
Quarter: 2011Q2

REPORT INFORMATION
  Report Type: 
  Country: None (occurrence: None)
  Receive Date: 20110629
  Receipt Date: 20110622
  Transmission Date: 20111010
  Serious: Yes (Life-Threatening, Hospitalization)
  Sender: FDA-Public Use
  Company Number: FR-SANOFI-AVENTIS-2011SA039501

PATIENT
  Age: 70 Year
  Sex: Female

DRUGS (4)
  1. KETOPROFEN [Suspect]
     Route: 048
     Dates: start: 20110606, end: 20110607
  2. LITHIUM CARBONATE [Interacting]
     Route: 048
  3. METFORMIN HCL [Suspect]
     Route: 048
  4. GLYBURIDE [Suspect]
     Route: 048

REACTIONS (6)
  - HYPOGLYCAEMIA [None]
  - RENAL FAILURE ACUTE [None]
  - ANTIPSYCHOTIC DRUG LEVEL ABOVE THERAPEUTIC [None]
  - DRUG INTERACTION [None]
  - HYPERKALAEMIA [None]
  - LACTIC ACIDOSIS [None]
